FAERS Safety Report 7912881-5 (Version None)
Quarter: 2011Q4

REPORT INFORMATION
  Report Type: 
  Country: None (occurrence: None)
  Receive Date: 20111114
  Receipt Date: 20111103
  Transmission Date: 20120403
  Serious: Yes (Hospitalization)
  Sender: FDA-Public Use
  Company Number: US-ASTRAZENECA-2011SE66705

PATIENT
  Age: 59 Year
  Sex: Female
  Weight: 90.7 kg

DRUGS (13)
  1. NORCO [Concomitant]
     Indication: PAIN
     Dosage: 5/325 MG AS REQUIRED
     Route: 048
  2. SEROQUEL [Suspect]
     Indication: DEPRESSION
     Route: 048
     Dates: start: 19970101
  3. DOXEPIN [Concomitant]
     Indication: DEPRESSION
     Route: 048
  4. NAPROSYN [Concomitant]
     Indication: PAIN
     Route: 048
     Dates: start: 20110901
  5. ADVAIR DISKUS 100/50 [Concomitant]
     Indication: ASTHMA
     Dosage: 1 PUFF TWO TIMES A DAY
     Route: 055
  6. SEROQUEL [Suspect]
     Indication: ANXIETY
     Route: 048
     Dates: start: 19970101
  7. SEROQUEL [Suspect]
     Route: 048
  8. BUSPAR [Concomitant]
     Indication: DEPRESSION
     Route: 048
  9. SEROQUEL [Suspect]
     Route: 048
  10. XANAX [Concomitant]
     Indication: ANXIETY
     Route: 048
     Dates: start: 20090101
  11. LISINOPRIL [Concomitant]
     Indication: BLOOD PRESSURE
     Route: 048
  12. METOPROLOL SUCCINATE [Concomitant]
     Indication: BLOOD PRESSURE
     Route: 048
     Dates: start: 20090101
  13. LYRICA [Concomitant]
     Indication: FIBROMYALGIA

REACTIONS (3)
  - FEELING ABNORMAL [None]
  - CIRCULATORY COLLAPSE [None]
  - CARDIAC FAILURE [None]
